FAERS Safety Report 16032839 (Version 2)
Quarter: 2021Q3

REPORT INFORMATION
  Report Type: Spontaneous
  Country: GB (occurrence: GB)
  Receive Date: 20190305
  Receipt Date: 20210726
  Transmission Date: 20211014
  Serious: Yes (Other)
  Sender: FDA-Public Use
  Company Number: GB-SUN PHARMACEUTICAL INDUSTRIES LTD-2019RR-200671

PATIENT
  Age: 54 Year
  Sex: Female

DRUGS (115)
  1. TRASTUZUMAB. [Suspect]
     Active Substance: TRASTUZUMAB
     Indication: HER2 POSITIVE BREAST CANCER
     Dosage: 600 MILLIGRAM, MONTHLY
     Route: 058
  2. MEROPENEM. [Concomitant]
     Active Substance: MEROPENEM
     Dosage: 1 GRAM, UNK
     Route: 042
     Dates: start: 20200622, end: 20200622
  3. AMOXICILLIN. [Concomitant]
     Active Substance: AMOXICILLIN
     Indication: LOWER RESPIRATORY TRACT INFECTION
     Dosage: UNK
     Route: 048
     Dates: start: 20170701, end: 20170706
  4. DOXYCYCLINE. [Concomitant]
     Active Substance: DOXYCYCLINE
     Indication: LOWER RESPIRATORY TRACT INFECTION
     Dosage: 100 MILLIGRAM, DAILY
     Route: 048
     Dates: start: 20180814, end: 20180814
  5. DOXYCYCLINE. [Concomitant]
     Active Substance: DOXYCYCLINE
     Indication: PNEUMONIA
     Dosage: 100 MILLIGRAM, QD
     Route: 048
     Dates: start: 20180815
  6. CITALOPRAM [Concomitant]
     Active Substance: CITALOPRAM HYDROBROMIDE
     Indication: PRODUCT USED FOR UNKNOWN INDICATION
     Dosage: 40 MILLIGRAM, DAILY
     Route: 048
     Dates: start: 2005
  7. CLARITHROMYCIN. [Concomitant]
     Active Substance: CLARITHROMYCIN
     Dosage: 500 MILLIGRAM, BID
     Route: 048
     Dates: start: 20191111, end: 20191118
  8. CLARITHROMYCIN. [Concomitant]
     Active Substance: CLARITHROMYCIN
     Dosage: 500 MILLIGRAM, BID
     Route: 048
     Dates: start: 20200622, end: 20200628
  9. PROMETHAZINE HYDROCHLORIDE. [Concomitant]
     Active Substance: PROMETHAZINE HYDROCHLORIDE
     Dosage: 25 MILLIGRAM, QD
     Route: 048
  10. PROMETHAZINE HYDROCHLORIDE. [Concomitant]
     Active Substance: PROMETHAZINE HYDROCHLORIDE
     Dosage: 50 MILLIGRAM, QD
     Route: 048
  11. TEICOPLANIN [Concomitant]
     Active Substance: TEICOPLANIN
     Indication: PYREXIA
     Dosage: 600 MILLIGRAM, BID
     Route: 042
     Dates: start: 20181019, end: 20181025
  12. CODEINE [Concomitant]
     Active Substance: CODEINE
     Indication: PRODUCT USED FOR UNKNOWN INDICATION
     Dosage: AS NEEDED
     Route: 048
     Dates: start: 201504
  13. DIAZEPAM. [Concomitant]
     Active Substance: DIAZEPAM
     Indication: MUSCULOSKELETAL STIFFNESS
     Dosage: UNK
     Route: 065
  14. LISINOPRIL. [Concomitant]
     Active Substance: LISINOPRIL
     Indication: EJECTION FRACTION DECREASED
     Dosage: 2.5 MILLIGRAM, DAILY
     Route: 048
     Dates: start: 20161110
  15. LANSOPRAZOLE. [Concomitant]
     Active Substance: LANSOPRAZOLE
     Dosage: 30 MILLIGRAM, QD, REFLUX
     Route: 048
  16. TRASTUZUMAB EMTANSINE [Suspect]
     Active Substance: ADO-TRASTUZUMAB EMTANSINE
     Indication: PRODUCT USED FOR UNKNOWN INDICATION
  17. CLINDAMYCIN. [Concomitant]
     Active Substance: CLINDAMYCIN
     Indication: PRODUCT USED FOR UNKNOWN INDICATION
  18. COTRIMOXAZOLE [Concomitant]
     Active Substance: SULFAMETHOXAZOLE\TRIMETHOPRIM
     Indication: SEPSIS
     Dosage: 960 MILLIGRAM, BID
     Route: 048
     Dates: start: 20200728, end: 20200803
  19. COTRIMOXAZOLE [Concomitant]
     Active Substance: SULFAMETHOXAZOLE\TRIMETHOPRIM
     Dosage: 960 MILLIGRAM, BID
     Route: 048
     Dates: start: 20190206, end: 20190211
  20. FUROSEMIDE. [Concomitant]
     Active Substance: FUROSEMIDE
     Indication: OEDEMA PERIPHERAL
     Dosage: 40 MILLIGRAM, BID
     Route: 048
     Dates: start: 20200626
  21. AMOXICILLIN. [Concomitant]
     Active Substance: AMOXICILLIN
     Indication: PYREXIA
     Dosage: 1 GRAM, TID
     Route: 042
     Dates: start: 20191111, end: 20191115
  22. LINEZOLID. [Concomitant]
     Active Substance: LINEZOLID
     Indication: CELLULITIS
     Dosage: 600 MILLIGRAM, BID
     Route: 042
     Dates: start: 20200206, end: 20200212
  23. LETROZOLE. [Suspect]
     Active Substance: LETROZOLE
     Indication: HER2 POSITIVE BREAST CANCER
     Dosage: 2.5 MILLIGRAM, DAILY
     Route: 048
  24. DEXAMETHASONE. [Concomitant]
     Active Substance: DEXAMETHASONE
     Indication: METASTASES TO BONE
     Dosage: REDUCING DOSE FROM HOSPITAL ADMISSION 8/OCT/2015? 10/OCT/2015
     Route: 048
     Dates: start: 20151008, end: 20151020
  25. GABAPENTIN. [Concomitant]
     Active Substance: GABAPENTIN
     Indication: PRODUCT USED FOR UNKNOWN INDICATION
     Dosage: 300 MILLIGRAM, TID
     Route: 048
     Dates: start: 20151231
  26. MORPHINE SULPHATE [Concomitant]
     Active Substance: MORPHINE SULFATE
     Indication: BACK PAIN
     Dosage: ONCE AT NIGHT
     Route: 048
     Dates: start: 201504, end: 20160516
  27. AMOXICILLIN. [Concomitant]
     Active Substance: AMOXICILLIN
     Dosage: 1000 MILLIGRAM, TID
     Route: 048
     Dates: start: 20180701, end: 20180711
  28. METRONIDAZOLE. [Concomitant]
     Active Substance: METRONIDAZOLE
     Indication: OSTEOMYELITIS
     Dosage: UNK
     Route: 048
     Dates: start: 20170701, end: 20170708
  29. DOXYCYCLINE. [Concomitant]
     Active Substance: DOXYCYCLINE
     Dosage: 100 MILLIGRAM, BID
     Route: 048
     Dates: start: 20180814, end: 20180814
  30. CLARITHROMYCIN. [Concomitant]
     Active Substance: CLARITHROMYCIN
     Dosage: 500 MILLIGRAM, BID
     Route: 048
     Dates: start: 20191219, end: 20191221
  31. CO?AMOXICLAV [Concomitant]
     Active Substance: AMOXICILLIN\CLAVULANATE POTASSIUM
     Indication: PYREXIA
     Dosage: UNK
     Route: 048
     Dates: start: 20190322
  32. COTRIMOXAZOLE [Concomitant]
     Active Substance: SULFAMETHOXAZOLE\TRIMETHOPRIM
     Indication: PNEUMONIA
     Dosage: 960 MILLIGRAM, BID
     Route: 042
     Dates: start: 20190611, end: 20190611
  33. FLUCLOXACILLIN [Concomitant]
     Active Substance: FLUCLOXACILLIN
     Indication: PYREXIA
     Dosage: 500 MILLIGRAM, QID
     Route: 048
     Dates: start: 20180915, end: 20180921
  34. RIFAMPICIN [Concomitant]
     Active Substance: RIFAMPIN
     Indication: CELLULITIS
     Dosage: 300 MILLIGRAM, BID
     Route: 048
     Dates: start: 20200212, end: 20200212
  35. DENOSUMAB [Concomitant]
     Active Substance: DENOSUMAB
     Indication: METASTASES TO BONE
     Dosage: 120 MILLIGRAM
     Route: 058
     Dates: start: 20170604, end: 20170613
  36. AMOXICILLIN. [Concomitant]
     Active Substance: AMOXICILLIN
     Dosage: 1 GRAM, TID
     Route: 048
     Dates: start: 20191115, end: 20191118
  37. AMOXICILLIN. [Concomitant]
     Active Substance: AMOXICILLIN
     Dosage: 500 MILLIGRAM, UNK
     Route: 048
     Dates: start: 20180701, end: 20180711
  38. AMOXICILLIN. [Concomitant]
     Active Substance: AMOXICILLIN
     Dosage: 500 MILLIGRAM, TID
     Route: 048
     Dates: start: 20190414
  39. AMOXICILLIN. [Concomitant]
     Active Substance: AMOXICILLIN
     Dosage: 1 GRAM, TID
     Route: 048
     Dates: start: 20191219, end: 20191221
  40. LINEZOLID. [Concomitant]
     Active Substance: LINEZOLID
     Indication: PYREXIA
     Dosage: 600 MILLIGRAM, BID
     Route: 048
     Dates: start: 20181223, end: 20181227
  41. COTRIMOXAZOLE [Concomitant]
     Active Substance: SULFAMETHOXAZOLE\TRIMETHOPRIM
     Indication: PYREXIA
     Dosage: 80/400, 1 TABLET
     Route: 048
     Dates: start: 20181015, end: 20181022
  42. FUROSEMIDE. [Concomitant]
     Active Substance: FUROSEMIDE
     Indication: OEDEMA
     Dosage: 20 MILLIGRAM, QD
     Route: 048
     Dates: start: 20191113, end: 20191116
  43. INHIXA [Concomitant]
     Active Substance: ENOXAPARIN SODIUM
     Indication: THROMBOLYSIS
     Dosage: DVT PROPHYLAXIS
     Route: 058
     Dates: start: 20200728, end: 20200805
  44. TAZOCIN [Concomitant]
     Active Substance: PIPERACILLIN SODIUM\TAZOBACTAM SODIUM
     Indication: CELLULITIS
     Dosage: 4.5 GRAM, TID
     Route: 042
     Dates: start: 20200202, end: 20200206
  45. TINZAPARIN [Concomitant]
     Active Substance: TINZAPARIN
     Dosage: POSSSIBLE DVTTREATMENT
     Route: 058
     Dates: start: 20200624, end: 20200624
  46. VANCOMYCIN [Concomitant]
     Active Substance: VANCOMYCIN
     Indication: CELLULITIS
     Dosage: 1.5 GRAM, BID
     Route: 042
     Dates: start: 20200201, end: 20200206
  47. CLARITHROMYCIN. [Concomitant]
     Active Substance: CLARITHROMYCIN
     Indication: PNEUMONIA
     Dosage: 500 MILLIGRAM, BID
     Route: 042
     Dates: start: 20190611, end: 20190611
  48. DEXAMETHASONE. [Concomitant]
     Active Substance: DEXAMETHASONE
     Dosage: REDUCING WEEKLY DOSE
     Route: 048
     Dates: start: 20151111, end: 20151117
  49. GABAPENTIN. [Concomitant]
     Active Substance: GABAPENTIN
     Dosage: 1.2 GRAM, TID
     Route: 048
  50. DENOSUMAB [Concomitant]
     Active Substance: DENOSUMAB
     Dosage: 120 MILLIGRAM
     Route: 058
     Dates: start: 20180118
  51. PARACETAMOL [Concomitant]
     Active Substance: ACETAMINOPHEN
     Indication: PRODUCT USED FOR UNKNOWN INDICATION
     Dosage: AS NEEDED
     Route: 048
     Dates: start: 201504
  52. AMOXICILLIN. [Concomitant]
     Active Substance: AMOXICILLIN
     Indication: OSTEOMYELITIS
     Dosage: 1000 MILLIGRAM, DAILY
     Route: 048
     Dates: start: 20180701, end: 20180711
  53. DOXYCYCLINE. [Concomitant]
     Active Substance: DOXYCYCLINE
     Dosage: 100 MILLIGRAM, BID
     Route: 048
     Dates: start: 20190929, end: 20191005
  54. CLARITHROMYCIN. [Concomitant]
     Active Substance: CLARITHROMYCIN
     Indication: LOWER RESPIRATORY TRACT INFECTION
     Dosage: 500 MILLIGRAM, BID
     Route: 048
     Dates: start: 20180701, end: 20180711
  55. CYCLIZINE [Concomitant]
     Active Substance: CYCLIZINE
     Indication: PRODUCT USED FOR UNKNOWN INDICATION
     Dosage: 50 MILLIGRAM, TID
     Route: 048
     Dates: start: 201507
  56. FLUCLOXACILLIN [Concomitant]
     Active Substance: FLUCLOXACILLIN
     Dosage: PARONCHIA OF FINGER + TOE
     Route: 048
     Dates: start: 20180910, end: 20180912
  57. INHIXA [Concomitant]
     Active Substance: ENOXAPARIN SODIUM
     Dosage: 40 MILLIGRAM, QD
     Route: 058
     Dates: start: 20200625, end: 20200625
  58. INHIXA [Concomitant]
     Active Substance: ENOXAPARIN SODIUM
     Dosage: FOTR DVT PROHYLAXIS,
     Route: 058
     Dates: start: 20190610, end: 20190623
  59. LEVOTHYROXINE. [Concomitant]
     Active Substance: LEVOTHYROXINE
     Indication: HYPOTHYROIDISM
     Dosage: 50 MICROGRAM, QD
     Route: 048
     Dates: start: 20200311
  60. PREDNISOLONE. [Concomitant]
     Active Substance: PREDNISOLONE
     Indication: PNEUMONIA
     Dosage: 30 MILLIGRAM, QD
     Route: 048
     Dates: start: 20200625, end: 20200629
  61. TAZOCIN [Concomitant]
     Active Substance: PIPERACILLIN SODIUM\TAZOBACTAM SODIUM
     Indication: PNEUMONIA
     Dosage: 4.5 MILLIGRAM, TID
     Route: 042
     Dates: start: 20191221, end: 20191227
  62. EXEMESTANE. [Suspect]
     Active Substance: EXEMESTANE
     Indication: HER2 POSITIVE BREAST CANCER
     Dosage: 25 MILLIGRAM, DAILY
     Route: 048
  63. GABAPENTIN. [Concomitant]
     Active Substance: GABAPENTIN
     Dosage: 1.2 GRAM, UNK
     Route: 067
  64. MEROPENEM. [Concomitant]
     Active Substance: MEROPENEM
     Indication: PYREXIA
     Dosage: 1 GRAM, TID
     Route: 042
     Dates: start: 20180813, end: 20180814
  65. MEROPENEM. [Concomitant]
     Active Substance: MEROPENEM
     Dosage: 1 GRAM, TID
     Route: 042
     Dates: start: 20190610, end: 20190617
  66. METRONIDAZOLE. [Concomitant]
     Active Substance: METRONIDAZOLE
     Indication: CELLULITIS
     Dosage: 400 MILLIGRAM, QID
     Route: 048
     Dates: start: 20180915, end: 20180921
  67. DOXYCYCLINE. [Concomitant]
     Active Substance: DOXYCYCLINE
     Dosage: 200 MILLIGRAM, QD
     Route: 048
     Dates: start: 20191223, end: 20191230
  68. DOXYCYCLINE. [Concomitant]
     Active Substance: DOXYCYCLINE
     Dosage: 100 MILLIGRAM, QD
     Route: 048
     Dates: start: 20180815
  69. HYOSCINE BUTYLBROMIDE [Concomitant]
     Active Substance: BUTYLSCOPOLAMINE BROMIDE
     Indication: NAUSEA
     Dosage: 10 MILLIGRAM, DAILY
     Route: 048
     Dates: start: 20181222
  70. FLUCLOXACILLIN [Concomitant]
     Active Substance: FLUCLOXACILLIN
     Indication: CELLULITIS
     Dosage: 1 GRAM, QID
     Route: 065
     Dates: start: 20180912, end: 20180915
  71. FLUCLOXACILLIN [Concomitant]
     Active Substance: FLUCLOXACILLIN
     Dosage: 1 GRAM, QID
     Route: 042
     Dates: start: 20020130, end: 20200202
  72. FUROSEMIDE. [Concomitant]
     Active Substance: FUROSEMIDE
     Dosage: 40 MILLIGRAM, QD
     Route: 042
     Dates: start: 20200622, end: 20200623
  73. FUROSEMIDE. [Concomitant]
     Active Substance: FUROSEMIDE
     Dosage: 40 MILLIGRAM, BID
     Route: 042
     Dates: start: 20200623, end: 20200626
  74. DEXAMETHASONE. [Concomitant]
     Active Substance: DEXAMETHASONE
     Dosage: 4 MILLIGRAM
     Route: 048
     Dates: start: 20151020, end: 20151103
  75. DEXAMETHASONE. [Concomitant]
     Active Substance: DEXAMETHASONE
     Dosage: 4 MILLIGRAM
     Route: 048
     Dates: start: 20151104, end: 20151110
  76. DEXAMETHASONE. [Concomitant]
     Active Substance: DEXAMETHASONE
     Dosage: 1 MILLIGRAM
     Route: 048
     Dates: start: 20151118, end: 20151124
  77. DEXAMETHASONE. [Concomitant]
     Active Substance: DEXAMETHASONE
     Dosage: 1 MILLIGRAM
     Route: 048
     Dates: start: 20151125, end: 20151202
  78. MEROPENEM. [Concomitant]
     Active Substance: MEROPENEM
     Dosage: 1 GRAM, UNK
     Route: 042
     Dates: start: 20200728, end: 20200728
  79. BENZYLPENICILLIN [Concomitant]
     Active Substance: PENICILLIN G
     Indication: CELLULITIS
     Dosage: UNK
     Route: 065
  80. DIAZEPAM. [Concomitant]
     Active Substance: DIAZEPAM
     Indication: BACK PAIN
     Dosage: 2 MILLIGRAM, DAILY
     Route: 048
     Dates: start: 20180105
  81. AMOXICILLIN. [Concomitant]
     Active Substance: AMOXICILLIN
     Dosage: 1 GRAM, TID
     Route: 048
     Dates: start: 20200626, end: 20200626
  82. DOXYCYCLINE. [Concomitant]
     Active Substance: DOXYCYCLINE
     Indication: PYREXIA
     Dosage: UNK
     Route: 048
     Dates: start: 20170112, end: 20170118
  83. DOXYCYCLINE. [Concomitant]
     Active Substance: DOXYCYCLINE
     Indication: HERPES ZOSTER
     Dosage: 100 MILLIGRAM, QD
     Route: 048
     Dates: start: 20200728, end: 20200728
  84. DOXYCYCLINE. [Concomitant]
     Active Substance: DOXYCYCLINE
     Dosage: UNK, QD
     Route: 048
     Dates: start: 20170112, end: 20170112
  85. CLARITHROMYCIN. [Concomitant]
     Active Substance: CLARITHROMYCIN
     Dosage: 500 MILLIGRAM, BID
     Route: 048
     Dates: start: 20190415
  86. DERMOL [Concomitant]
     Active Substance: BENZALKONIUM CHLORIDE\CHLORHEXIDINE HYDROCHLORIDE\ISOPROPYL MYRISTATE\PARAFFIN
     Indication: PRODUCT USED FOR UNKNOWN INDICATION
     Dosage: FOR SKIN, QID
     Route: 061
  87. FUROSEMIDE. [Concomitant]
     Active Substance: FUROSEMIDE
     Dosage: 40 MILLIGRAM, QD
     Route: 048
     Dates: start: 20191117
  88. TINZAPARIN [Concomitant]
     Active Substance: TINZAPARIN
     Indication: DEEP VEIN THROMBOSIS
     Dosage: 20000 U
     Route: 058
     Dates: start: 20190928
  89. LINEZOLID. [Concomitant]
     Active Substance: LINEZOLID
     Dosage: 600 MILLIGRAM, STAPHYLOCOCCUSAURES SHOWN ONSKIN/SUPERFISCIALWOUND SWAB A
     Route: 042
     Dates: start: 20190611, end: 20190621
  90. TRASTUZUMAB. [Suspect]
     Active Substance: TRASTUZUMAB
     Dosage: 420 MILLIGRAM/ 4 WEEKS
     Route: 042
     Dates: start: 20180118
  91. MEROPENEM. [Concomitant]
     Active Substance: MEROPENEM
     Dosage: 1 GRAM, DAILY
     Route: 042
     Dates: start: 20181222, end: 20181227
  92. MEROPENEM. [Concomitant]
     Active Substance: MEROPENEM
     Dosage: 1 GRAM, UNK
     Route: 042
     Dates: start: 20190205, end: 20190205
  93. MORPHINE SULPHATE [Concomitant]
     Active Substance: MORPHINE SULFATE
     Dosage: ONCE AT NIGHT
     Route: 048
     Dates: start: 20150516, end: 201611
  94. BENZYLPENICILLIN [Concomitant]
     Active Substance: PENICILLIN G
     Indication: PYREXIA
     Dosage: 1.2 GRAM, QID
     Route: 042
     Dates: start: 20180912, end: 20180915
  95. VITAMIN D3 [Concomitant]
     Active Substance: CHOLECALCIFEROL
     Indication: PRODUCT USED FOR UNKNOWN INDICATION
     Dosage: 400 INTERNATIONAL UNIT, QD
     Route: 048
     Dates: start: 20150827
  96. TEICOPLANIN [Concomitant]
     Active Substance: TEICOPLANIN
     Dosage: 800 MILLIGRAM, BID
     Route: 042
     Dates: start: 20200728, end: 20200803
  97. ZOMORPH [Concomitant]
     Active Substance: MORPHINE SULFATE
     Indication: METASTASES TO BONE
     Dosage: 30 MILLIGRAM, BID
     Route: 048
     Dates: start: 201611
  98. INHIXA [Concomitant]
     Active Substance: ENOXAPARIN SODIUM
     Dosage: THROMBOLYSISPROPHYLAXIS
     Route: 058
     Dates: start: 20200622, end: 20200623
  99. MAGNESIUM ASPARTATE [Concomitant]
     Active Substance: MAGNESIUM ASPARTATE
     Indication: HYPOMAGNESAEMIA
     Dosage: 6.5 GRAM, BID
     Route: 048
     Dates: start: 20191111
  100. ZANAMIVIR [Concomitant]
     Active Substance: ZANAMIVIR
     Indication: PYREXIA
     Dosage: INHALANT
     Route: 065
     Dates: start: 20191218, end: 20191219
  101. MORPHINE SULPHATE [Concomitant]
     Active Substance: MORPHINE SULFATE
     Dosage: 30 MILLIGRAM, DAILY
     Route: 048
     Dates: start: 201504
  102. ZOMETA [Concomitant]
     Active Substance: ZOLEDRONIC ACID
     Indication: PRODUCT USED FOR UNKNOWN INDICATION
     Dosage: 4 MILLIGRAM
     Route: 042
     Dates: start: 20150827, end: 20160314
  103. CLARITHROMYCIN. [Concomitant]
     Active Substance: CLARITHROMYCIN
     Dosage: 500 MILLIGRAM, BID
     Route: 048
     Dates: start: 20200728, end: 20200803
  104. PEPTAC (UNITED KINGDOM) [Concomitant]
     Indication: PRODUCT USED FOR UNKNOWN INDICATION
     Dosage: 15 MILLILITER
     Route: 048
  105. PROMETHAZINE HYDROCHLORIDE. [Concomitant]
     Active Substance: PROMETHAZINE HYDROCHLORIDE
     Indication: PRODUCT USED FOR UNKNOWN INDICATION
     Dosage: UNK
     Route: 048
  106. MORPHINE SULPHATE [Concomitant]
     Active Substance: MORPHINE SULFATE
     Indication: PRODUCT USED FOR UNKNOWN INDICATION
     Dosage: 10 MILLIGRAM, DAILY
     Route: 048
     Dates: start: 20171224
  107. LANSOPRAZOLE. [Concomitant]
     Active Substance: LANSOPRAZOLE
     Indication: PRODUCT USED FOR UNKNOWN INDICATION
     Dosage: 15 MILLIGRAM, DAILY
     Route: 048
     Dates: start: 2001
  108. CALCIUM [Concomitant]
     Active Substance: CALCIUM
     Indication: PRODUCT USED FOR UNKNOWN INDICATION
     Dosage: BONE DISEASE
     Route: 048
     Dates: start: 20150727, end: 20180117
  109. CIPROFLOXACIN. [Concomitant]
     Active Substance: CIPROFLOXACIN
     Indication: PYREXIA
     Dosage: 750 MILLIGRAM, BID
     Route: 048
     Dates: start: 20190205, end: 20190206
  110. CO?AMOXICLAV [Concomitant]
     Active Substance: AMOXICILLIN\CLAVULANATE POTASSIUM
     Indication: CELLULITIS
     Dosage: 625 MILLIGRAM, TID
     Route: 048
     Dates: start: 20190205, end: 20190206
  111. LOPERAMIDE [Concomitant]
     Active Substance: LOPERAMIDE
     Indication: DIARRHOEA
     Dosage: UNK
     Route: 065
     Dates: start: 201804, end: 2019
  112. NAPROXEN. [Concomitant]
     Active Substance: NAPROXEN
     Indication: PRODUCT USED FOR UNKNOWN INDICATION
  113. ACIDEX [Concomitant]
     Indication: DYSPEPSIA
     Dosage: 15 MILLILITER, AS NECESSARY
     Route: 048
  114. AMOXICILLIN. [Concomitant]
     Active Substance: AMOXICILLIN
     Dosage: 1 GRAM, TID
     Route: 042
     Dates: start: 20200622, end: 20200626
  115. AMOXICILLIN. [Concomitant]
     Active Substance: AMOXICILLIN
     Dosage: 1 GRAM, UNK
     Route: 042
     Dates: start: 20191218, end: 20191219

REACTIONS (7)
  - Herpes zoster [Recovered/Resolved]
  - Anaemia [Recovered/Resolved]
  - Lymphoedema [Recovered/Resolved]
  - Musculoskeletal stiffness [Not Recovered/Not Resolved]
  - Humerus fracture [Recovered/Resolved]
  - Oral herpes [Recovered/Resolved]
  - Back pain [Recovered/Resolved]

NARRATIVE: CASE EVENT DATE: 20151112
